FAERS Safety Report 4352884-3 (Version None)
Quarter: 2004Q2

REPORT INFORMATION
  Report Type: 
  Country: None (occurrence: None)
  Receive Date: 20040504
  Receipt Date: 20040301
  Transmission Date: 20050107
  Serious: Yes (Hospitalization, Other)
  Sender: FDA-Public Use
  Company Number: US-AMGEN-US067939

PATIENT
  Sex: Male

DRUGS (5)
  1. EPOGEN [Suspect]
     Indication: DIALYSIS
     Dates: start: 20031116
  2. LOPRESSOR [Concomitant]
     Dates: start: 20031116
  3. NORVASC [Concomitant]
  4. IMDUR [Concomitant]
  5. ZEMPLAR (ABBOTT LABORATORIES) [Concomitant]
     Route: 042

REACTIONS (6)
  - ASTHENIA [None]
  - BIOPSY BONE MARROW ABNORMAL [None]
  - BONE MARROW DEPRESSION [None]
  - DRUG INEFFECTIVE [None]
  - DYSPNOEA EXERTIONAL [None]
  - PLASMACYTOSIS [None]
